FAERS Safety Report 10459396 (Version 2)
Quarter: 2014Q3

REPORT INFORMATION
  Report Type: Spontaneous
  Country: None (occurrence: CA)
  Receive Date: 20140917
  Receipt Date: 20140930
  Transmission Date: 20150326
  Serious: Yes (Death)
  Sender: FDA-Public Use
  Company Number: 2014SP002957

PATIENT
  Age: 58 Year
  Sex: Female
  Weight: 73 kg

DRUGS (4)
  1. MAVIK [Suspect]
     Active Substance: TRANDOLAPRIL
     Indication: HYPERTENSION
     Route: 048
     Dates: start: 20140212
  2. CYMBALTA [Concomitant]
     Active Substance: DULOXETINE HYDROCHLORIDE
     Indication: DEPRESSION
     Route: 048
     Dates: start: 20140725
  3. FOSAMAX [Concomitant]
     Active Substance: ALENDRONATE SODIUM
     Indication: OSTEOPOROSIS
     Route: 048
     Dates: start: 20140621
  4. LATUDA [Suspect]
     Active Substance: LURASIDONE HYDROCHLORIDE
     Indication: DEPRESSION
     Route: 048
     Dates: start: 20140827

REACTIONS (1)
  - Haemorrhagic stroke [Fatal]

NARRATIVE: CASE EVENT DATE: 20140905
